FAERS Safety Report 7680160-X (Version None)
Quarter: 2011Q3

REPORT INFORMATION
  Report Type: 
  Country: None (occurrence: None)
  Receive Date: 20110812
  Receipt Date: 20110805
  Transmission Date: 20111222
  Serious: Yes (Other)
  Sender: FDA-Public Use
  Company Number: GB-ROCHE-795719

PATIENT
  Age: 54 Year
  Sex: Female

DRUGS (4)
  1. EPIRUBICIN [Concomitant]
  2. CYCLOPHOSPHAMIDE [Concomitant]
  3. RAMIPRIL [Concomitant]
  4. HERCEPTIN [Suspect]
     Indication: BREAST CANCER
     Route: 065

REACTIONS (3)
  - EJECTION FRACTION DECREASED [None]
  - BLOOD PRESSURE DECREASED [None]
  - MUSCLE DISORDER [None]
